FAERS Safety Report 7118545-2 (Version None)
Quarter: 2010Q4

REPORT INFORMATION
  Report Type: 
  Country: None (occurrence: None)
  Receive Date: 20101123
  Receipt Date: 20101117
  Transmission Date: 20110411
  Serious: Yes (Death, Hospitalization, Other)
  Sender: FDA-Public Use
  Company Number: US-CELGENEUS-163-21880-10070296

PATIENT
  Sex: Female
  Weight: 45.582 kg

DRUGS (30)
  1. REVLIMID [Suspect]
     Indication: MULTIPLE MYELOMA
     Route: 048
     Dates: start: 20080906, end: 20090201
  2. REVLIMID [Suspect]
     Route: 048
     Dates: start: 20100522, end: 20100726
  3. DECADRON [Concomitant]
     Route: 048
  4. ARANESP [Concomitant]
     Route: 058
     Dates: start: 20100401
  5. K-DUR [Concomitant]
     Route: 048
  6. K-DUR [Concomitant]
     Route: 065
  7. LASIX [Concomitant]
     Route: 048
  8. ACETAMINOPHEN AND HYDROCODONE BITARTRATE [Concomitant]
     Dosage: 10-500MG
     Route: 048
  9. ASPIRIN [Concomitant]
     Route: 048
  10. TENORETIC 100 [Concomitant]
     Dosage: 100-25MG
     Route: 048
  11. DILTIAZEM HCL [Concomitant]
     Route: 048
  12. CALTRATE [Concomitant]
     Route: 048
  13. VITAMIN D3 [Concomitant]
     Route: 048
  14. ATIVAN [Concomitant]
     Route: 048
  15. AMITRIPTYLINE HCL [Concomitant]
     Route: 048
  16. NEURONTIN [Concomitant]
     Route: 048
  17. DARVOCET-N 100 [Concomitant]
     Indication: PAIN
     Dosage: 100-650MG, 1
     Route: 048
  18. MELOXICAM [Concomitant]
     Route: 048
  19. CYANOCOBALAMIN [Concomitant]
     Dosage: 1000 MCG/ML
     Route: 048
  20. LIPOFEN [Concomitant]
     Route: 048
  21. COMPAZINE [Concomitant]
     Route: 048
  22. PREVACID [Concomitant]
     Route: 048
  23. ZOMETA [Concomitant]
     Route: 065
  24. BORTEZOMIB [Concomitant]
     Indication: MULTIPLE MYELOMA
     Dosage: 1.3MG/M2
     Route: 051
     Dates: start: 20100428, end: 20100715
  25. FLUIDS [Concomitant]
     Route: 051
     Dates: start: 20100801
  26. VITAMIN D [Concomitant]
     Dosage: 50,000 UNITS
     Route: 065
  27. VITAMIN B-12 [Concomitant]
     Route: 048
  28. PREDNISONE [Concomitant]
     Route: 065
  29. VASOPRESSIN [Concomitant]
     Route: 051
     Dates: start: 20100801
  30. LEVOPHED [Concomitant]
     Route: 065

REACTIONS (8)
  - FALL [None]
  - FATIGUE [None]
  - GASTRIC ULCER HAEMORRHAGE [None]
  - OEDEMA PERIPHERAL [None]
  - PAIN [None]
  - RENAL FAILURE [None]
  - URINARY TRACT INFECTION [None]
  - WRIST FRACTURE [None]
